FAERS Safety Report 7553626-0 (Version None)
Quarter: 2011Q2

REPORT INFORMATION
  Report Type: 
  Country: None (occurrence: None)
  Receive Date: 20110617
  Receipt Date: 20110607
  Transmission Date: 20111010
  Serious: Yes (Life-Threatening, Hospitalization)
  Sender: FDA-Public Use
  Company Number: DE-JNJFOC-20110605006

PATIENT
  Sex: Female
  Weight: 80 kg

DRUGS (4)
  1. ABCIXIMAB [Suspect]
     Indication: ACUTE MYOCARDIAL INFARCTION
     Route: 016
     Dates: start: 20081106, end: 20081106
  2. CLOPIDOGREL [Concomitant]
     Indication: ACUTE MYOCARDIAL INFARCTION
     Route: 065
     Dates: start: 20081106
  3. HEPARIN [Concomitant]
     Indication: ACUTE MYOCARDIAL INFARCTION
     Route: 065
     Dates: start: 20081106, end: 20081106
  4. ACETYL SALICYLIC ACID COMPOUND TAB [Concomitant]
     Indication: ACUTE MYOCARDIAL INFARCTION
     Route: 065
     Dates: start: 20081106

REACTIONS (1)
  - CARDIAC TAMPONADE [None]
